FAERS Safety Report 9539100 (Version 2)
Quarter: 2013Q3

REPORT INFORMATION
  Report Type: Spontaneous
  Country: US (occurrence: US)
  Receive Date: 20130920
  Receipt Date: 20130926
  Transmission Date: 20140515
  Serious: Yes (Hospitalization, Other)
  Sender: FDA-Public Use
  Company Number: US-BAYER-2013-111337

PATIENT
  Age: 20 Year
  Sex: Female
  Weight: 78.5 kg

DRUGS (12)
  1. YAZ [Suspect]
     Indication: ACNE
     Dosage: UNK
     Dates: start: 200709, end: 2010
  2. GIANVI [Suspect]
     Dosage: UNK
     Dates: start: 201007, end: 201101
  3. DILAUDID [Concomitant]
     Indication: FLANK PAIN
  4. ZOFRAN [Concomitant]
  5. LASIX [FUROSEMIDE SODIUM] [Concomitant]
  6. LEVAQUIN [Concomitant]
     Indication: URINARY TRACT INFECTION
  7. LEVOFLOXACIN [Concomitant]
     Indication: PNEUMONIA PNEUMOCOCCAL
  8. CYMBALTA [Concomitant]
     Indication: DEPRESSION
  9. LANTUS [Concomitant]
  10. NOVOLOG [Concomitant]
  11. LOPID [Concomitant]
  12. PROPRANOLOL [Concomitant]

REACTIONS (19)
  - Pancreatitis acute [Recovered/Resolved]
  - Circulatory collapse [None]
  - Nervous system disorder [None]
  - Metabolic disorder [None]
  - Renal failure [None]
  - Acute respiratory distress syndrome [None]
  - Type 1 diabetes mellitus [None]
  - Type 2 diabetes mellitus [None]
  - Pneumonia [None]
  - Depression [None]
  - Abdominal pain upper [Recovered/Resolved]
  - Nausea [Recovered/Resolved]
  - Blood triglycerides increased [Recovered/Resolved]
  - Dyspnoea [None]
  - Anxiety [None]
  - Hyperglycaemia [None]
  - Abdominal pain lower [Recovered/Resolved]
  - Diarrhoea [Recovered/Resolved]
  - Hyperlipidaemia [None]
